FAERS Safety Report 6940746-4 (Version None)
Quarter: 2010Q3

REPORT INFORMATION
  Report Type: 
  Country: None (occurrence: None)
  Receive Date: 20100825
  Receipt Date: 20100506
  Transmission Date: 20110219
  Serious: No
  Sender: FDA-Public Use
  Company Number: US-MYLANLABS-2010S1008224

PATIENT
  Age: 74 Year
  Sex: Female
  Weight: 39.92 kg

DRUGS (3)
  1. CLORAZEPATE DIPOTASSIUM [Suspect]
     Indication: INSOMNIA
     Route: 048
     Dates: start: 20000101
  2. VITAMIN D [Concomitant]
  3. M.V.I. [Concomitant]

REACTIONS (4)
  - IRRITABILITY [None]
  - MOOD SWINGS [None]
  - REACTION TO DRUG EXCIPIENTS [None]
  - SUICIDAL IDEATION [None]
